FAERS Safety Report 9618856 (Version 1)
Quarter: 2013Q4

REPORT INFORMATION
  Report Type: Spontaneous
  Country: CA (occurrence: CA)
  Receive Date: 20131014
  Receipt Date: 20131014
  Transmission Date: 20140711
  Serious: Yes (Life-Threatening, Hospitalization)
  Sender: FDA-Public Use
  Company Number: CA-MYLANLABS-2013S1022195

PATIENT
  Age: 68 Year
  Sex: Male

DRUGS (7)
  1. AMLODIPINE [Suspect]
     Indication: OVERDOSE
     Dosage: DF = AMLODIPINE 10MG
     Route: 048
  2. METFORMIN [Suspect]
     Indication: OVERDOSE
     Dosage: DF = METFORMIN 500MG
     Route: 048
  3. ASPIRIN [Concomitant]
     Route: 065
  4. CLONAZEPAM [Concomitant]
     Route: 065
  5. GLIBENCLAMIDE [Concomitant]
     Route: 065
  6. IRBESARTAN [Concomitant]
     Route: 065
  7. TAMSULOSIN [Concomitant]
     Route: 065

REACTIONS (5)
  - Overdose [Recovered/Resolved]
  - Suicide attempt [Recovered/Resolved]
  - Toxicity to various agents [Recovered/Resolved]
  - Shock [Recovered/Resolved]
  - Metabolic acidosis [Recovered/Resolved]
